FAERS Safety Report 7776408-3 (Version None)
Quarter: 2011Q3

REPORT INFORMATION
  Report Type: 
  Country: None (occurrence: None)
  Receive Date: 20110926
  Receipt Date: 20110921
  Transmission Date: 20111222
  Serious: Yes (Hospitalization)
  Sender: FDA-Public Use
  Company Number: FR-PFIZER INC-2011211833

PATIENT
  Age: 73 Year
  Sex: Male

DRUGS (10)
  1. DURAGESIC-100 [Concomitant]
  2. PIPERACILLIN AND TAZOBACTAM [Suspect]
     Dosage: UNK
     Route: 042
     Dates: start: 20110528, end: 20110530
  3. PYOSTACINE [Suspect]
     Dosage: UNK
     Route: 048
     Dates: start: 20110528, end: 20110530
  4. SPECIAFOLDINE [Concomitant]
  5. PANTOPRAZOLE [Concomitant]
  6. ACETAMINOPHEN [Concomitant]
  7. CIPROFLOXACIN [Suspect]
     Dosage: UNK
     Dates: start: 20110528, end: 20110530
  8. ASPIRIN [Concomitant]
     Dosage: 75 MG
  9. FERROUS SULFATE TAB [Concomitant]
  10. AMIKACIN [Suspect]
     Dosage: UNK
     Route: 042
     Dates: start: 20110528, end: 20110530

REACTIONS (3)
  - ERYTHEMA [None]
  - NIKOLSKY'S SIGN [None]
  - TOXIC SKIN ERUPTION [None]
